FAERS Safety Report 6860593-1 (Version None)
Quarter: 2010Q3

REPORT INFORMATION
  Report Type: 
  Country: None (occurrence: None)
  Receive Date: 20100720
  Receipt Date: 20100709
  Transmission Date: 20110219
  Serious: Yes (Hospitalization)
  Sender: FDA-Public Use
  Company Number: US-ROCHE-714877

PATIENT
  Sex: Female
  Weight: 66.3 kg

DRUGS (4)
  1. TRASTUZUMAB [Suspect]
     Dosage: DOSE:8MG/KG, FORM: VIAL
     Route: 042
     Dates: start: 20100628
  2. BEVACIZUMAB [Suspect]
     Dosage: DOSE LEVEL: 15 MG/KG, FORM: VIALS
     Route: 042
     Dates: start: 20100628
  3. CARBOPLATIN [Suspect]
     Dosage: DOSE LEVEL: 6 AUC, FORM: VIALS
     Route: 042
     Dates: start: 20100628
  4. DOCETAXEL [Suspect]
     Dosage: DOSE LEVEL: 75 MG/M2, FORM: VIAL
     Route: 042
     Dates: start: 20100628

REACTIONS (1)
  - MUCOSAL INFLAMMATION [None]
